FAERS Safety Report 25536398 (Version 1)
Quarter: 2025Q3

REPORT INFORMATION
  Report Type: Report from Study
  Country: US (occurrence: US)
  Receive Date: 20250709
  Receipt Date: 20250709
  Transmission Date: 20251021
  Serious: No
  Sender: TG THERAPEUTICS
  Company Number: US-TG THERAPEUTICS INC.-TGT005390

PATIENT

DRUGS (10)
  1. UBLITUXIMAB [Suspect]
     Active Substance: UBLITUXIMAB
     Indication: Multiple sclerosis
     Route: 042
     Dates: start: 20231012, end: 20231012
  2. UBLITUXIMAB [Suspect]
     Active Substance: UBLITUXIMAB
     Route: 042
     Dates: start: 20241118, end: 20241118
  3. DULOXETINE HYDROCHLORIDE [Concomitant]
     Active Substance: DULOXETINE HYDROCHLORIDE
     Indication: Product used for unknown indication
     Dosage: 50 MILLIGRAM, BID
     Route: 048
  4. GABAPENTIN [Concomitant]
     Active Substance: GABAPENTIN
     Indication: Pain
     Dosage: 500 MILLIGRAM, TID
     Route: 048
  5. LYRICA [Concomitant]
     Active Substance: PREGABALIN
     Indication: Pain
     Dosage: 35 MILLIGRAM, BID
     Route: 048
  6. BACLOFEN [Concomitant]
     Active Substance: BACLOFEN
     Indication: Product used for unknown indication
  7. BUPROPION HYDROCHLORIDE [Concomitant]
     Active Substance: BUPROPION HYDROCHLORIDE
     Indication: Anxiety
     Dosage: 50 MILLIGRAM, TID
  8. METHOCARBAMOL [Concomitant]
     Active Substance: METHOCARBAMOL
     Indication: Muscle relaxant therapy
  9. OXYBUTYNIN [Concomitant]
     Active Substance: OXYBUTYNIN
     Indication: Bladder disorder
  10. VITAMINS NOS [Concomitant]
     Active Substance: VITAMINS
     Indication: Product used for unknown indication

REACTIONS (2)
  - Infusion related reaction [Unknown]
  - Piloerection [Unknown]
